FAERS Safety Report 14590341 (Version 1)
Quarter: 2018Q1

REPORT INFORMATION
  Report Type: Spontaneous
  Country: US (occurrence: US)
  Receive Date: 20180302
  Receipt Date: 20180302
  Transmission Date: 20180509
  Serious: No
  Sender: FDA-Public Use
  Company Number: US-PFIZER INC-2018044032

PATIENT
  Age: 72 Year
  Sex: Female

DRUGS (20)
  1. BUPROPION HCL ER [Concomitant]
     Active Substance: BUPROPION HYDROCHLORIDE
     Dosage: 200 MG, 2X/DAY
     Route: 048
  2. VITAMIN D3 [Concomitant]
     Active Substance: CHOLECALCIFEROL
     Dosage: 1000 IU, DAILY
     Route: 048
  3. NEXIUM [Concomitant]
     Active Substance: ESOMEPRAZOLE MAGNESIUM
     Dosage: 40 MG, DAILY
     Route: 048
  4. ESCITALOPRAM OXALATE. [Concomitant]
     Active Substance: ESCITALOPRAM OXALATE
     Dosage: UNK UNK, 2X/DAY (1/2 AM / ONE PM)
  5. FLUTICASONE PROPIONATE. [Concomitant]
     Active Substance: FLUTICASONE PROPIONATE
     Dosage: 50 UG, 2X/DAY (: INSTILL 1 SPRAY INTO EACH NOSTRIL )
     Route: 045
  6. PREDNISONE. [Concomitant]
     Active Substance: PREDNISONE
     Dosage: 10 MG, UNK (TAPER DAILY AS DIRECTED (4/4/4/3/3/3/2/2/2/1/1/1))
  7. CYCLOBENZAPRINE HCL [Concomitant]
     Active Substance: CYCLOBENZAPRINE HYDROCHLORIDE
     Dosage: 5 MG, AS NEEDED (AT BEDTIME AS NEEDED)
     Route: 048
  8. FENOFIBRATE. [Concomitant]
     Active Substance: FENOFIBRATE
     Dosage: 54 MG, 1X/DAY (AT BEDTIME)
     Route: 048
  9. CLONAZEPAM. [Concomitant]
     Active Substance: CLONAZEPAM
     Dosage: 0.5 MG, 1X/DAY (EVERY MORNING)
     Route: 048
  10. APRISO [Concomitant]
     Active Substance: MESALAMINE
     Dosage: 1.5 G, 1X/DAY (4 PO Q PM DINNER)
     Route: 048
  11. ZYRTEC [Concomitant]
     Active Substance: CETIRIZINE HYDROCHLORIDE
     Dosage: 10 MG, DAILY
     Route: 048
  12. QUETIAPINE FUMARATE. [Concomitant]
     Active Substance: QUETIAPINE FUMARATE
     Dosage: UNK (1.5)
  13. ALVESCO [Concomitant]
     Active Substance: CICLESONIDE
     Dosage: UNK UNK, 2X/DAY (2 PUFFS TWICE A DAY INHALATION )
     Route: 055
  14. LYRICA [Suspect]
     Active Substance: PREGABALIN
     Dosage: 75 MG, 2X/DAY
     Route: 048
  15. HYDRALAZINE HCL [Concomitant]
     Active Substance: HYDRALAZINE HYDROCHLORIDE
     Dosage: 100 MG, 2X/DAY
     Route: 048
  16. OXYCODONE-ACETAMINOP [Concomitant]
     Dosage: UNK UNK, AS NEEDED (OXYCODONE: 5 MG, ACETAMINOP: 325 MG)
     Route: 048
  17. VALSARTAN-HYDROCHLOR [Concomitant]
     Dosage: UNK UNK, DAILY (VALSARTAN: 320MG, HYDROCHLOR: 25 MG)
     Route: 048
  18. DIVALPROEX SODIUM. [Concomitant]
     Active Substance: DIVALPROEX SODIUM
     Dosage: 1000 MG, 1X/DAY (AT BEDTIME)
     Route: 048
  19. KLOR-CON [Concomitant]
     Active Substance: POTASSIUM CHLORIDE
     Dosage: 10 MEQ, ALTERNATE DAY
     Route: 048
  20. LEVOTHYROXINE SODIUM. [Concomitant]
     Active Substance: LEVOTHYROXINE SODIUM
     Dosage: 200 UG, DAILY
     Route: 048

REACTIONS (1)
  - Road traffic accident [Unknown]
